FAERS Safety Report 6164063-8 (Version None)
Quarter: 2009Q2

REPORT INFORMATION
  Report Type: 
  Country: None (occurrence: None)
  Receive Date: 20090422
  Receipt Date: 20090414
  Transmission Date: 20091009
  Serious: Yes (Hospitalization, Congenital Anomaly)
  Sender: FDA-Public Use
  Company Number: A0680251A

PATIENT
  Sex: Male
  Weight: 4.3 kg

DRUGS (4)
  1. PAXIL [Suspect]
     Indication: DRUG USE FOR UNKNOWN INDICATION
     Route: 048
  2. ZANTAC [Concomitant]
  3. LORTAB [Concomitant]
  4. SEPTRA DS [Concomitant]
     Dates: start: 20001201

REACTIONS (12)
  - ADRENAL INSUFFICIENCY [None]
  - ASPIRATION [None]
  - ATRIAL SEPTAL DEFECT [None]
  - CEREBRAL ATROPHY [None]
  - DRUG EXPOSURE DURING PREGNANCY [None]
  - DYSPHAGIA [None]
  - ENCEPHALOPATHY [None]
  - HYDRONEPHROSIS [None]
  - IMMUNODEFICIENCY [None]
  - PERSISTENT FOETAL CIRCULATION [None]
  - POLYDACTYLY [None]
  - SPINE MALFORMATION [None]
